FAERS Safety Report 9716621 (Version 2)
Quarter: 2013Q4

REPORT INFORMATION
  Report Type: Spontaneous
  Country: US (occurrence: US)
  Receive Date: 20131127
  Receipt Date: 20131202
  Transmission Date: 20140711
  Serious: No
  Sender: FDA-Public Use
  Company Number: US-PFIZER INC-2013338150

PATIENT
  Age: 56 Year
  Sex: Male
  Weight: 77.1 kg

DRUGS (7)
  1. CHANTIX [Suspect]
     Indication: SMOKING CESSATION THERAPY
     Dosage: 0.5 MG, 1X/DAY
     Route: 048
     Dates: start: 201310
  2. NORCO [Concomitant]
     Indication: PAIN
     Dosage: UNK
  3. SOMA [Concomitant]
     Indication: PAIN
     Dosage: UNK
  4. XANAX [Concomitant]
     Dosage: UNK, 1X/DAY
  5. KLONOPIN [Concomitant]
     Dosage: UNK, 3X/DAY (EVERY EIGHT HOURS)
  6. GABAPENTIN [Concomitant]
     Dosage: 900 MG, 2X/DAY
  7. FAMCICLOVIR [Concomitant]
     Indication: HERPES VIRUS INFECTION
     Dosage: 500 MG, 2X/DAY

REACTIONS (1)
  - Drug ineffective [Unknown]
